FAERS Safety Report 12693278 (Version 1)
Quarter: 2016Q3

REPORT INFORMATION
  Report Type: Spontaneous
  Country: US (occurrence: US)
  Receive Date: 20160829
  Receipt Date: 20160829
  Transmission Date: 20161109
  Serious: No
  Sender: FDA-Public Use
  Company Number: US-BAXALTA-2016BLT006190

PATIENT
  Age: 59 Year
  Sex: Male
  Weight: 80.2 kg

DRUGS (2)
  1. HYQVIA [Suspect]
     Active Substance: HUMAN IMMUNOGLOBULIN G\HYALURONIDASE RECOMBINANT HUMAN
     Dosage: 50 G, EVERY 4 WK
     Route: 065
     Dates: start: 201601
  2. HYQVIA [Suspect]
     Active Substance: HUMAN IMMUNOGLOBULIN G\HYALURONIDASE RECOMBINANT HUMAN
     Indication: PRODUCT USED FOR UNKNOWN INDICATION
     Dosage: 50 G, EVERY 4 WK
     Route: 065
     Dates: start: 20160822, end: 20160822

REACTIONS (2)
  - Infusion site extravasation [Recovered/Resolved]
  - Infusion site erythema [Not Recovered/Not Resolved]

NARRATIVE: CASE EVENT DATE: 20160822
